FAERS Safety Report 9297167 (Version 1)
Quarter: 2013Q2

REPORT INFORMATION
  Report Type: Spontaneous
  Country: IN (occurrence: IN)
  Receive Date: 20130520
  Receipt Date: 20130520
  Transmission Date: 20140414
  Serious: Yes (Other)
  Sender: FDA-Public Use
  Company Number: IN-MERCK-1305IND008203

PATIENT
  Age: 63 Year
  Sex: Male

DRUGS (2)
  1. VIRAFERONPEG [Suspect]
     Dosage: 100 MICROGRAM, QW
     Dates: start: 20130329, end: 201305
  2. REBETOL [Suspect]
     Dosage: UNK

REACTIONS (3)
  - Spinal fracture [Unknown]
  - Fall [Unknown]
  - Dizziness [Unknown]
